FAERS Safety Report 6488321-2 (Version None)
Quarter: 2009Q4

REPORT INFORMATION
  Report Type: 
  Country: None (occurrence: None)
  Receive Date: 20091210
  Receipt Date: 20090830
  Transmission Date: 20100525
  Serious: No
  Sender: FDA-Public Use
  Company Number: US-AMGEN-KDL362443

PATIENT
  Sex: Female
  Weight: 90.8 kg

DRUGS (3)
  1. ENBREL [Suspect]
     Indication: RHEUMATOID ARTHRITIS
     Route: 058
     Dates: start: 20080708
  2. PLAQUENIL [Concomitant]
     Route: 048
     Dates: start: 20020501
  3. METHOTREXATE [Concomitant]
     Route: 048
     Dates: start: 20050801

REACTIONS (2)
  - FEELING ABNORMAL [None]
  - SINUSITIS [None]
